FAERS Safety Report 10784292 (Version 2)
Quarter: 2015Q1

REPORT INFORMATION
  Report Type: Spontaneous
  Country: CO (occurrence: CO)
  Receive Date: 20150211
  Receipt Date: 20150220
  Transmission Date: 20150721
  Serious: Yes (Hospitalization, Other)
  Sender: FDA-Public Use
  Company Number: CO-AMGEN-COLSP2014102712

PATIENT
  Age: 63 Year
  Sex: Female
  Weight: 70 kg

DRUGS (2)
  1. ENBREL [Suspect]
     Active Substance: ETANERCEPT
     Dosage: 50 MG, WEEKLY
     Route: 058
     Dates: start: 2011
  2. ENBREL [Suspect]
     Active Substance: ETANERCEPT
     Indication: RHEUMATOID ARTHRITIS
     Dosage: 50 MG, QWK
     Route: 058
     Dates: start: 201212, end: 2015

REACTIONS (13)
  - Rectal haemorrhage [Recovering/Resolving]
  - Vulvovaginal dryness [Recovering/Resolving]
  - Diarrhoea [Unknown]
  - Anal fissure [Recovering/Resolving]
  - Dry mouth [Recovering/Resolving]
  - Nasal dryness [Recovering/Resolving]
  - Anal injury [Not Recovered/Not Resolved]
  - Headache [Not Recovered/Not Resolved]
  - Vomiting [Unknown]
  - Bronchitis [Recovered/Resolved]
  - Productive cough [Not Recovered/Not Resolved]
  - Mucosal dryness [Recovering/Resolving]
  - Cough [Not Recovered/Not Resolved]

NARRATIVE: CASE EVENT DATE: 2011
